FAERS Safety Report 7058315-7 (Version None)
Quarter: 2010Q4

REPORT INFORMATION
  Report Type: 
  Country: None (occurrence: None)
  Receive Date: 20101022
  Receipt Date: 20101011
  Transmission Date: 20110411
  Serious: No
  Sender: FDA-Public Use
  Company Number: US-PFIZER INC-2010129164

PATIENT
  Sex: Male
  Weight: 87.075 kg

DRUGS (5)
  1. VIAGRA [Suspect]
     Indication: ERECTILE DYSFUNCTION
     Dosage: UNK
     Route: 048
  2. GENERAL NUTRIENTS/HERBAL NOS/MINERALS NOS/VITAMINS NOS [Suspect]
     Indication: ERECTILE DYSFUNCTION
     Dosage: UNK
     Route: 048
  3. LISINOPRIL [Concomitant]
     Indication: HYPERTENSION
     Dosage: 20 MG, 1X/DAY
     Route: 048
  4. HYDROCHLOROTHIAZIDE [Concomitant]
     Indication: HYPERTENSION
     Dosage: 12.5 MG, 1X/DAY
     Route: 048
  5. DILTIAZEM [Concomitant]
     Indication: HYPERTENSION
     Dosage: 60 MG, 1X/DAY
     Route: 048

REACTIONS (4)
  - EJACULATION FAILURE [None]
  - HOT FLUSH [None]
  - MALE ORGASMIC DISORDER [None]
  - MALE SEXUAL DYSFUNCTION [None]
